FAERS Safety Report 7511125-6 (Version None)
Quarter: 2011Q2

REPORT INFORMATION
  Report Type: 
  Country: None (occurrence: None)
  Receive Date: 20110531
  Receipt Date: 20110517
  Transmission Date: 20111010
  Serious: No
  Sender: FDA-Public Use
  Company Number: US-JNJFOC-20110406173

PATIENT
  Sex: Male

DRUGS (16)
  1. FENTANYL-100 [Suspect]
     Indication: TRIGEMINAL NEURALGIA
     Route: 062
  2. FENTANYL-100 [Suspect]
     Indication: FRACTURE
     Route: 062
  3. FENTANYL-100 [Suspect]
     Indication: NEUROPATHY PERIPHERAL
     Route: 062
     Dates: start: 20110101
  4. FENTANYL-100 [Suspect]
     Indication: NEUROPATHY PERIPHERAL
     Route: 062
     Dates: end: 20110101
  5. FENTANYL-100 [Suspect]
     Route: 062
  6. FENTANYL-100 [Suspect]
     Route: 062
     Dates: end: 20110101
  7. FENTANYL-100 [Suspect]
     Route: 062
     Dates: start: 20080101, end: 20110101
  8. FENTANYL-100 [Suspect]
     Route: 062
     Dates: start: 20080101, end: 20110101
  9. FENTANYL-100 [Suspect]
     Indication: FRACTURE
     Route: 062
     Dates: start: 20110101
  10. FENTANYL-100 [Suspect]
     Route: 062
     Dates: start: 20060101, end: 20080101
  11. FENTANYL-100 [Suspect]
     Indication: TRIGEMINAL NEURALGIA
     Route: 062
     Dates: start: 20110101
  12. FENTANYL-100 [Suspect]
     Route: 062
     Dates: end: 20110101
  13. FENTANYL-100 [Suspect]
     Route: 062
     Dates: start: 20060101, end: 20080101
  14. FENTANYL-100 [Suspect]
     Route: 062
     Dates: start: 20060101, end: 20080101
  15. FENTANYL-100 [Suspect]
     Route: 062
     Dates: start: 20080101, end: 20110101
  16. FENTANYL-100 [Suspect]
     Indication: PAIN
     Route: 062

REACTIONS (6)
  - INAPPROPRIATE SCHEDULE OF DRUG ADMINISTRATION [None]
  - PRODUCT QUALITY ISSUE [None]
  - CHILLS [None]
  - HYPERHIDROSIS [None]
  - WITHDRAWAL SYNDROME [None]
  - HEADACHE [None]
